FAERS Safety Report 25143185 (Version 1)
Quarter: 2025Q2

REPORT INFORMATION
  Report Type: Spontaneous
  Country: US (occurrence: US)
  Receive Date: 20250401
  Receipt Date: 20250401
  Transmission Date: 20250717
  Serious: Yes (Other)
  Sender: EMCURE
  Company Number: US-AVET LIFESCIENCES LTD-2025-AVET-000088

PATIENT
  Age: 40 Year
  Sex: Female

DRUGS (3)
  1. TEMOZOLOMIDE [Suspect]
     Active Substance: TEMOZOLOMIDE
     Indication: Astrocytoma malignant
  2. TEMOZOLOMIDE [Suspect]
     Active Substance: TEMOZOLOMIDE
     Route: 065
  3. PERILLA ALCOHOL [Concomitant]
     Active Substance: PERILLA ALCOHOL
     Indication: Astrocytoma malignant
     Route: 045
     Dates: start: 2023

REACTIONS (1)
  - Drug resistance [Unknown]
